FAERS Safety Report 25981801 (Version 1)
Quarter: 2025Q4

REPORT INFORMATION
  Report Type: Spontaneous
  Country: EU (occurrence: EU)
  Receive Date: 20251031
  Receipt Date: 20251031
  Transmission Date: 20260117
  Serious: Yes (Hospitalization)
  Sender: ACCORD
  Company Number: None

PATIENT
  Age: 1 Day
  Sex: Male

DRUGS (3)
  1. QUETIAPINE [Suspect]
     Active Substance: QUETIAPINE
     Indication: Bipolar disorder
     Dosage: 25 MG X 1?CONTINUED USE OF MEDICINAL PRODUCT
     Dates: start: 20120922
  2. LITHIUM SULFATE [Suspect]
     Active Substance: LITHIUM SULFATE
     Indication: Bipolar disorder
     Dosage: 41,5 X 2?CONTINUED USE OF MEDICINAL PRODUCT
     Dates: start: 20120709
  3. EUTHYROX [Concomitant]
     Active Substance: LEVOTHYROXINE SODIUM
     Indication: Hypothyroidism
     Dosage: 50 MICROGRAM X 1?CONTINUED USE OF MEDICINAL PRODUCT

REACTIONS (2)
  - Foetal exposure during pregnancy [Recovering/Resolving]
  - Neonatal behavioural syndrome [Recovering/Resolving]

NARRATIVE: CASE EVENT DATE: 20250911
